FAERS Safety Report 18264246 (Version 2)
Quarter: 2021Q1

REPORT INFORMATION
  Report Type: Report from Study
  Country: BR (occurrence: BR)
  Receive Date: 20200914
  Receipt Date: 20210204
  Transmission Date: 20210419
  Serious: Yes (Other)
  Sender: FDA-Public Use
  Company Number: BR-SHIRE-BR202022926

PATIENT
  Age: 23 Year
  Sex: Male
  Weight: 92 kg

DRUGS (3)
  1. FACTOR VIII INHIBITOR BYPASSING FRACTION; BAXJECT II NF [Suspect]
     Active Substance: ANTI-INHIBITOR COAGULANT COMPLEX
     Indication: FACTOR VIII DEFICIENCY
     Dosage: 9000 INTERNATIONAL UNIT, 3X A WEEK
     Route: 042
     Dates: start: 19991118
  2. HEMO?8R [Suspect]
     Active Substance: ANTIHEMOPHILIC FACTOR, HUMAN RECOMBINANT
     Indication: PROPHYLAXIS
     Dosage: 9000 INTERNATIONAL UNIT, 7X A WEEK
     Route: 065
  3. FACTOR VIII INHIBITOR BYPASSING FRACTION; BAXJECT II NF [Suspect]
     Active Substance: ANTI-INHIBITOR COAGULANT COMPLEX
     Dosage: 9000 INTERNATIONAL UNIT, 3X A WEEK
     Route: 042
     Dates: start: 19991118

REACTIONS (4)
  - Factor VIII inhibition [Recovering/Resolving]
  - Incorrect product administration duration [None]
  - Treatment failure [Recovering/Resolving]
  - Product dose omission issue [Recovered/Resolved]

NARRATIVE: CASE EVENT DATE: 202101
